FAERS Safety Report 18079102 (Version 1)
Quarter: 2020Q3

REPORT INFORMATION
  Report Type: Spontaneous
  Country: US (occurrence: US)
  Receive Date: 20200727
  Receipt Date: 20200727
  Transmission Date: 20201103
  Serious: Yes (Hospitalization)
  Sender: FDA-Public Use
  Company Number: None

PATIENT
  Age: 71 Year
  Sex: Female

DRUGS (15)
  1. TACROLIMUS 0.5MG [Suspect]
     Active Substance: TACROLIMUS
     Indication: RENAL TRANSPLANT
     Dosage: DOSE OR AMOUNT: 1MG AND 0.5MG?          OTHER FREQUENCY:1 MG MORNING, 0.5MG EVE)?
     Route: 048
     Dates: start: 201702
  2. DOXAZOSIN [Concomitant]
     Active Substance: DOXAZOSIN MESYLATE
  3. HYDRALAZINE [Concomitant]
     Active Substance: HYDRALAZINE HYDROCHLORIDE
  4. AMLODIPINE [Concomitant]
     Active Substance: AMLODIPINE BESYLATE
  5. LEVOTHYROXIN [Concomitant]
     Active Substance: LEVOTHYROXINE
  6. MELATONIN [Concomitant]
     Active Substance: MELATONIN
  7. CEPHALEXIN. [Concomitant]
     Active Substance: CEPHALEXIN
  8. MAGNESIUM [Concomitant]
     Active Substance: MAGNESIUM
  9. ROPINIROLE. [Concomitant]
     Active Substance: ROPINIROLE
  10. CARVEDILOL. [Concomitant]
     Active Substance: CARVEDILOL
  11. NEO/POLY/HC [Concomitant]
     Active Substance: HYDROCORTISONE\NEOMYCIN\POLYMYXIN B SULFATE
  12. VENLAFAXINE [Concomitant]
     Active Substance: VENLAFAXINE HYDROCHLORIDE
  13. MYCOPHENOLATE 250MG [Suspect]
     Active Substance: MYCOPHENOLIC ACID
     Indication: RENAL TRANSPLANT
     Route: 048
     Dates: start: 201702
  14. VITAMIN B12 [Concomitant]
     Active Substance: CYANOCOBALAMIN
  15. VITAMIN D3 [Concomitant]
     Active Substance: CHOLECALCIFEROL

REACTIONS (2)
  - Renal disorder [None]
  - Hypertension [None]

NARRATIVE: CASE EVENT DATE: 20200630
